FAERS Safety Report 5255625-0 (Version None)
Quarter: 2007Q1

REPORT INFORMATION
  Report Type: 
  Country: None (occurrence: None)
  Receive Date: 20070305
  Receipt Date: 20070221
  Transmission Date: 20070707
  Serious: Yes (Other)
  Sender: FDA-Public Use
  Company Number: GB-PFIZER INC-2007015148

PATIENT
  Sex: Female

DRUGS (3)
  1. GABAPENTIN [Suspect]
  2. LYRICA [Suspect]
     Route: 048
  3. ALL OTHER THERAPEUTIC PRODUCTS [Concomitant]

REACTIONS (4)
  - DIZZINESS [None]
  - EYE SWELLING [None]
  - LIVER FUNCTION TEST ABNORMAL [None]
  - VAGINAL NEOPLASM [None]
